FAERS Safety Report 7289409-9 (Version None)
Quarter: 2011Q1

REPORT INFORMATION
  Report Type: 
  Country: None (occurrence: None)
  Receive Date: 20110211
  Receipt Date: 20110209
  Transmission Date: 20110831
  Serious: Yes (Other)
  Sender: FDA-Public Use
  Company Number: US-MEDIMMUNE-MEDI-0012454

PATIENT
  Sex: Male
  Weight: 3.677 kg

DRUGS (7)
  1. ASPIRIN [Concomitant]
  2. CAPTOPRIL [Concomitant]
  3. ACETAMINOPHEN [Concomitant]
  4. FLUCONAZOLE [Concomitant]
  5. SPIRONOLACTONE [Concomitant]
  6. OMEPRAZOLE [Concomitant]
  7. SYNAGIS [Suspect]
     Route: 030

REACTIONS (1)
  - HAEMATOCHEZIA [None]
